FAERS Safety Report 7453966-X (Version None)
Quarter: 2011Q2

REPORT INFORMATION
  Report Type: 
  Country: None (occurrence: None)
  Receive Date: 20110502
  Receipt Date: 20101202
  Transmission Date: 20111010
  Serious: No
  Sender: FDA-Public Use
  Company Number: US-BAYER-2010-001029

PATIENT
  Age: 37 Year
  Sex: Female

DRUGS (5)
  1. LEBATO [Concomitant]
  2. AVELOX [Suspect]
     Indication: UPPER RESPIRATORY TRACT INFECTION
     Dosage: 400 MG, UNK
     Dates: start: 20101127, end: 20101127
  3. CYMBALTA [Concomitant]
  4. AVELOX [Suspect]
     Indication: SINUSITIS
  5. NEXIUM [Concomitant]

REACTIONS (9)
  - PRURITUS [None]
  - DIZZINESS [None]
  - URTICARIA [None]
  - BURNING SENSATION [None]
  - EYE PRURITUS [None]
  - EYE SWELLING [None]
  - OEDEMA PERIPHERAL [None]
  - ASTHENOPIA [None]
  - ASTHENIA [None]
